FAERS Safety Report 12165754 (Version 1)
Quarter: 2016Q1

REPORT INFORMATION
  Report Type: Not Available
  Country: None (occurrence: US)
  Receive Date: 20160309
  Receipt Date: 20160309
  Transmission Date: 20160526
  Serious: No
  Sender: FDA-Public Use
  Company Number: US-AKORN-18836

PATIENT

DRUGS (1)
  1. IC-GREEN [Suspect]
     Active Substance: INDOCYANINE GREEN

REACTIONS (3)
  - Injection site discolouration [None]
  - Product preparation error [None]
  - Medication residue present [None]
